FAERS Safety Report 5537663-3 (Version None)
Quarter: 2007Q4

REPORT INFORMATION
  Report Type: 
  Country: None (occurrence: None)
  Receive Date: 20071207
  Receipt Date: 20071113
  Transmission Date: 20080405
  Serious: Yes (Death)
  Sender: FDA-Public Use
  Company Number: US-AVENTIS-200718445US

PATIENT
  Age: 60 Year
  Sex: Male

DRUGS (2)
  1. LOVENOX [Suspect]
     Route: 051
  2. LOVENOX [Suspect]
     Route: 051

REACTIONS (2)
  - DRUG INEFFECTIVE [None]
  - PULMONARY EMBOLISM [None]
